FAERS Safety Report 9263803 (Version 2)
Quarter: 2013Q3

REPORT INFORMATION
  Report Type: Spontaneous
  Country: BR (occurrence: BR)
  Receive Date: 20130430
  Receipt Date: 20130702
  Transmission Date: 20140515
  Serious: Yes (Other)
  Sender: FDA-Public Use
  Company Number: BR-ASTRAZENECA-2013SE29101

PATIENT
  Age: 775 Month
  Sex: Male
  Weight: 95 kg

DRUGS (3)
  1. ATACAND [Suspect]
     Indication: HYPERTENSION
     Route: 048
     Dates: start: 2003
  2. SIMVASTATIN [Concomitant]
     Indication: BLOOD CHOLESTEROL INCREASED
     Dosage: DAILY
     Dates: start: 1997
  3. SOMALGIN [Concomitant]
     Dosage: DAILY
     Dates: start: 1997

REACTIONS (1)
  - Coronary artery occlusion [Recovered/Resolved]
